FAERS Safety Report 6373968-4 (Version None)
Quarter: 2009Q3

REPORT INFORMATION
  Report Type: 
  Country: None (occurrence: None)
  Receive Date: 20090924
  Receipt Date: 20090915
  Transmission Date: 20100115
  Serious: Yes (Hospitalization)
  Sender: FDA-Public Use
  Company Number: US-AMGEN-QUU364905

PATIENT
  Sex: Female

DRUGS (1)
  1. ENBREL [Suspect]
     Indication: RHEUMATOID ARTHRITIS
     Route: 058
     Dates: start: 20050201

REACTIONS (5)
  - BOWEL MOVEMENT IRREGULARITY [None]
  - DRUG INEFFECTIVE [None]
  - IMPAIRED HEALING [None]
  - INTESTINAL PERFORATION [None]
  - RHEUMATOID ARTHRITIS [None]
